FAERS Safety Report 7112858-6 (Version None)
Quarter: 2010Q4

REPORT INFORMATION
  Report Type: 
  Country: None (occurrence: None)
  Receive Date: 20101119
  Receipt Date: 20091125
  Transmission Date: 20110411
  Serious: No
  Sender: FDA-Public Use
  Company Number: US-BRISTOL-MYERS SQUIBB COMPANY-14852552

PATIENT
  Age: 45 Year
  Sex: Male

DRUGS (2)
  1. AVALIDE [Suspect]
     Indication: BLOOD PRESSURE
     Dosage: PRODUCT START APPROX 2 MONTHS
  2. BENICAR HCT [Suspect]

REACTIONS (2)
  - ALOPECIA [None]
  - PRURITUS [None]
